FAERS Safety Report 11491616 (Version 3)
Quarter: 2016Q3

REPORT INFORMATION
  Report Type: Spontaneous
  Country: JP (occurrence: JP)
  Receive Date: 20150910
  Receipt Date: 20160809
  Transmission Date: 20161109
  Serious: Yes (Life-Threatening, Hospitalization)
  Sender: FDA-Public Use
  Company Number: PHJP2015JP014186

PATIENT
  Age: 18 Year
  Sex: Male

DRUGS (2)
  1. TEGRETOL [Suspect]
     Active Substance: CARBAMAZEPINE
     Dosage: 434 DF (43.4 G), UNK
     Route: 048
     Dates: start: 20150727
  2. TEGRETOL [Suspect]
     Active Substance: CARBAMAZEPINE
     Indication: PARTIAL SEIZURES
     Dosage: 200 MG, QD
     Route: 048

REACTIONS (6)
  - Pulmonary embolism [Recovering/Resolving]
  - Deep vein thrombosis [Recovering/Resolving]
  - Altered state of consciousness [Recovering/Resolving]
  - Overdose [Recovering/Resolving]
  - Toxicity to various agents [Unknown]
  - Fall [Unknown]

NARRATIVE: CASE EVENT DATE: 20150727
